FAERS Safety Report 24957823 (Version 2)
Quarter: 2025Q1

REPORT INFORMATION
  Report Type: Spontaneous
  Country: FR (occurrence: FR)
  Receive Date: 20250212
  Receipt Date: 20250221
  Transmission Date: 20250408
  Serious: Yes (Other)
  Sender: TEVA
  Company Number: None

PATIENT
  Age: 47 Year
  Sex: Male
  Weight: 100 kg

DRUGS (17)
  1. COTRIMOXAZOLE [Suspect]
     Active Substance: SULFAMETHOXAZOLE\TRIMETHOPRIM
     Indication: Antifungal prophylaxis
     Dosage: 800/160MG MON WED FRI; COTRIMOXAZOLE TEVA 800 MG/160 MG
     Route: 048
     Dates: start: 20241021, end: 20241106
  2. COTRIMOXAZOLE [Suspect]
     Active Substance: SULFAMETHOXAZOLE\TRIMETHOPRIM
     Indication: Antifungal prophylaxis
     Dosage: 800/160MG MON WED FRI; COTRIMOXAZOLE TEVA 800 MG/160 MG
     Route: 048
     Dates: start: 20250105, end: 20250121
  3. AMLODIPINE [Concomitant]
     Active Substance: AMLODIPINE BESYLATE
     Indication: Hypertension
     Route: 048
     Dates: start: 20240918
  4. HYDROCORTISONE [Concomitant]
     Active Substance: HYDROCORTISONE
     Indication: Acute disseminated encephalomyelitis
     Dosage: HYDROCORTISONE ROUSSEL
     Route: 048
     Dates: start: 20240918
  5. INSULIN GLARGINE [Concomitant]
     Active Substance: INSULIN GLARGINE
     Indication: Steroid diabetes
     Dosage: 100 UNITS/ML
     Route: 058
     Dates: start: 20241018
  6. PIPERACILLIN SODIUM\TAZOBACTAM SODIUM [Suspect]
     Active Substance: PIPERACILLIN SODIUM\TAZOBACTAM SODIUM
     Indication: Pneumonia
     Dosage: 4 G/500 MG, PIPERACILLINE/TAZOBACTAM KABI
     Route: 042
     Dates: start: 20241205
  7. RITUXIMAB [Suspect]
     Active Substance: RITUXIMAB
     Indication: Acute disseminated encephalomyelitis
     Route: 042
     Dates: start: 20241001, end: 20241001
  8. RITUXIMAB [Suspect]
     Active Substance: RITUXIMAB
     Indication: Acute disseminated encephalomyelitis
     Route: 042
     Dates: start: 20240917, end: 20240917
  9. DEXTROSE MONOHYDRATE\POTASSIUM CHLORIDE\SODIUM CHLORIDE [Concomitant]
     Active Substance: DEXTROSE MONOHYDRATE\POTASSIUM CHLORIDE\SODIUM CHLORIDE
     Indication: Parenteral nutrition
     Dosage: WITH VITB6, NURTYELT, CERNEVIT, KCL; GLUCIDION G 5, SOLUTION FOR INJECTION FOR INFUSION
     Route: 042
     Dates: start: 20250113
  10. ATARAX [Suspect]
     Active Substance: HYDROXYZINE HYDROCHLORIDE
     Indication: Anxiety
     Dosage: 12.5-12.5-25MG
     Route: 048
     Dates: start: 20241220
  11. DOLIPRANE [Concomitant]
     Active Substance: ACETAMINOPHEN
     Indication: Pain
     Route: 048
     Dates: start: 202411
  12. CALCIUM\CHOLECALCIFEROL [Concomitant]
     Active Substance: CALCIUM\CHOLECALCIFEROL
     Indication: Osteoporosis
     Dosage: 500/400UI 1-0-1;
     Route: 048
     Dates: start: 20241205
  13. RAMIPRIL [Suspect]
     Active Substance: RAMIPRIL
     Indication: Hypertension
     Dosage: RAMIPRIL VIATRIS SCORED TABLET
     Route: 048
     Dates: start: 20250102, end: 20250121
  14. LANSOPRAZOLE [Suspect]
     Active Substance: LANSOPRAZOLE
     Indication: Complication associated with device
     Dosage: 15 MILLIGRAM, QD,LANSOPRAZOLE VIATRIS
     Route: 048
     Dates: start: 20240923
  15. LOVENOX [Suspect]
     Active Substance: ENOXAPARIN SODIUM
     Indication: Thrombosis prophylaxis
     Dosage: ANTI-XA/0.4 ML, SOLUTION FOR INJECTION IN AMPOULE
     Route: 058
     Dates: start: 20240909
  16. PAROXETINE HYDROCHLORIDE [Concomitant]
     Active Substance: PAROXETINE HYDROCHLORIDE
     Indication: Depression
     Dosage: PAROXETINE HYDROCHLORIDE ANHYDROUS
     Route: 048
     Dates: start: 20250117
  17. ALENDRONIC ACID [Concomitant]
     Active Substance: ALENDRONIC ACID
     Indication: Osteoporosis
     Dosage: MONDAYS;
     Route: 048
     Dates: start: 20241205

REACTIONS (1)
  - Agranulocytosis [Not Recovered/Not Resolved]

NARRATIVE: CASE EVENT DATE: 20250121
